FAERS Safety Report 7199213-8 (Version None)
Quarter: 2010Q4

REPORT INFORMATION
  Report Type: 
  Country: None (occurrence: None)
  Receive Date: 20101228
  Receipt Date: 20101217
  Transmission Date: 20110411
  Serious: Yes (Other)
  Sender: FDA-Public Use
  Company Number: PHHY2010GR85984

PATIENT
  Age: 60 Year
  Sex: Female

DRUGS (1)
  1. EXTAVIA [Suspect]
     Dosage: UNK

REACTIONS (4)
  - ABSCESS [None]
  - EYE DISORDER [None]
  - HYPERSENSITIVITY [None]
  - INJECTION SITE ERYTHEMA [None]
